FAERS Safety Report 26008888 (Version 1)
Quarter: 2025Q4

REPORT INFORMATION
  Report Type: Spontaneous
  Country: US (occurrence: US)
  Receive Date: 20251106
  Receipt Date: 20251106
  Transmission Date: 20260117
  Serious: Yes (Hospitalization)
  Sender: MANNKIND
  Company Number: US-MANNKIND CORP-2025MK000078

PATIENT
  Sex: Male

DRUGS (1)
  1. AFREZZA [Suspect]
     Active Substance: INSULIN HUMAN
     Indication: Type 2 diabetes mellitus
     Dosage: 12 UNITS, POWD (47918089190), INHALE 1 CARTRIDGE AT THE BEGINNING OF EACH MEAL VIA ORAL INHALATION T
     Dates: start: 20250917

REACTIONS (2)
  - Anaemia [Unknown]
  - Cough [Unknown]
